FAERS Safety Report 15099503 (Version 1)
Quarter: 2018Q3

REPORT INFORMATION
  Report Type: Spontaneous
  Country: US (occurrence: US)
  Receive Date: 20180702
  Receipt Date: 20180702
  Transmission Date: 20181010
  Serious: No
  Sender: FDA-Public Use
  Company Number: US-ACTELION-A-NJ2018-174462

PATIENT
  Age: 46 Year
  Sex: Female

DRUGS (2)
  1. ZOLINZA [Concomitant]
     Active Substance: VORINOSTAT
  2. VALCHLOR [Suspect]
     Active Substance: MECHLORETHAMINE
     Indication: MYCOSIS FUNGOIDES
     Dosage: UNK
     Route: 061
     Dates: start: 20180430

REACTIONS (6)
  - Application site inflammation [Unknown]
  - Inappropriate schedule of drug administration [Unknown]
  - Application site erythema [Unknown]
  - Application site pain [Unknown]
  - Application site swelling [Unknown]
  - Application site pruritus [Unknown]
